FAERS Safety Report 16487736 (Version 1)
Quarter: 2019Q2

REPORT INFORMATION
  Report Type: Spontaneous
  Country: PL (occurrence: PL)
  Receive Date: 20190627
  Receipt Date: 20190627
  Transmission Date: 20190711
  Serious: Yes (Death)
  Sender: FDA-Public Use
  Company Number: PL-SA-2019SA171669

PATIENT
  Age: 58 Year
  Sex: Male
  Weight: 67 kg

DRUGS (6)
  1. ZALTRAP [Suspect]
     Active Substance: ZIV-AFLIBERCEPT
     Dosage: 268
     Route: 042
     Dates: start: 20190417, end: 20190417
  2. FLUOROURACIL. [Suspect]
     Active Substance: FLUOROURACIL
     Indication: RECTAL CANCER
     Dosage: 2016
     Route: 041
     Dates: start: 20190417, end: 20190419
  3. FLUOROURACIL. [Suspect]
     Active Substance: FLUOROURACIL
     Dosage: 672
     Route: 042
     Dates: start: 20190417, end: 20190418
  4. LEVOFOLIC [Concomitant]
     Active Substance: LEUCOVORIN
     Dosage: UNK
  5. ZALTRAP [Suspect]
     Active Substance: ZIV-AFLIBERCEPT
     Indication: RECTAL CANCER
     Dosage: 268
     Route: 042
     Dates: start: 20190417, end: 20190417
  6. IRINOTECAN [Suspect]
     Active Substance: IRINOTECAN
     Indication: RECTAL CANCER
     Dosage: 302 MG, UNK
     Route: 042
     Dates: start: 20190417, end: 20190417

REACTIONS (5)
  - Neutropenia [Fatal]
  - Infection [Fatal]
  - Cardiopulmonary failure [Fatal]
  - Ileus [Fatal]
  - Diarrhoea [Fatal]

NARRATIVE: CASE EVENT DATE: 20190421
